FAERS Safety Report 7574080-9 (Version None)
Quarter: 2011Q2

REPORT INFORMATION
  Report Type: 
  Country: None (occurrence: None)
  Receive Date: 20110627
  Receipt Date: 20110617
  Transmission Date: 20111010
  Serious: Yes (Other)
  Sender: FDA-Public Use
  Company Number: JP-ASTRAZENECA-2011SE37509

PATIENT
  Age: 75 Year

DRUGS (2)
  1. TIAPRIDE HYDROCHLORIDE [Concomitant]
     Route: 048
  2. SEROQUEL [Suspect]
     Indication: DELIRIUM
     Route: 048

REACTIONS (2)
  - NEUROLEPTIC MALIGNANT SYNDROME [None]
  - OFF LABEL USE [None]
